FAERS Safety Report 25368885 (Version 2)
Quarter: 2025Q4

REPORT INFORMATION
  Report Type: Report from Study
  Country: US (occurrence: None)
  Receive Date: 20250528
  Receipt Date: 20251118
  Transmission Date: 20260117
  Serious: Yes (Other)
  Sender: UCB
  Company Number: US-UCBSA-2025031373

PATIENT
  Age: 13 Year
  Weight: 88.4 kg

DRUGS (1)
  1. FENFLURAMINE [Suspect]
     Active Substance: FENFLURAMINE
     Indication: Seizure
     Dosage: 26 MG/DAY

REACTIONS (1)
  - Tricuspid valve incompetence [Not Recovered/Not Resolved]
